FAERS Safety Report 22387469 (Version 2)
Quarter: 2023Q2

REPORT INFORMATION
  Report Type: Report from Study
  Country: US (occurrence: US)
  Receive Date: 20230531
  Receipt Date: 20230606
  Transmission Date: 20230721
  Serious: No
  Sender: FDA-Public Use
  Company Number: US-002147023-NVSC2023US122705

PATIENT
  Sex: Female

DRUGS (1)
  1. HYDROXYCHLOROQUINE SULFATE [Suspect]
     Active Substance: HYDROXYCHLOROQUINE SULFATE
     Indication: Seronegative arthritis
     Dosage: UNK
     Route: 065

REACTIONS (10)
  - Joint stiffness [Unknown]
  - Arthralgia [Unknown]
  - Pernicious anaemia [Unknown]
  - Chills [Unknown]
  - Night sweats [Unknown]
  - Arthropathy [Unknown]
  - Peripheral swelling [Unknown]
  - Rash [Unknown]
  - Pyrexia [Unknown]
  - Drug ineffective [Unknown]
